FAERS Safety Report 7560559-2 (Version None)
Quarter: 2011Q2

REPORT INFORMATION
  Report Type: 
  Country: None (occurrence: None)
  Receive Date: 20110621
  Receipt Date: 20100802
  Transmission Date: 20111010
  Serious: No
  Sender: FDA-Public Use
  Company Number: US-ASTRAZENECA-2010SE36191

PATIENT
  Age: 66 Year
  Sex: Male
  Weight: 80.3 kg

DRUGS (5)
  1. ENTOCORT EC [Suspect]
     Indication: CROHN'S DISEASE
     Route: 048
     Dates: start: 20100624, end: 20100629
  2. ENTOCORT EC [Suspect]
     Route: 048
     Dates: start: 20100629, end: 20100715
  3. ALLEGRA [Concomitant]
  4. ACIFEX [Concomitant]
  5. BENICAR [Concomitant]

REACTIONS (8)
  - BLOOD PRESSURE INCREASED [None]
  - HALLUCINATION [None]
  - FEELING ABNORMAL [None]
  - ABDOMINAL DISCOMFORT [None]
  - DIZZINESS [None]
  - TINNITUS [None]
  - HEADACHE [None]
  - ABDOMINAL PAIN [None]
